FAERS Safety Report 19969798 (Version 2)
Quarter: 2021Q4

REPORT INFORMATION
  Report Type: Report from Study
  Country: US (occurrence: US)
  Receive Date: 20211019
  Receipt Date: 20211117
  Transmission Date: 20220303
  Serious: Yes (Disabling, Other)
  Sender: FDA-Public Use
  Company Number: US-NOVARTISPH-NVSC2021US234274

PATIENT
  Age: 40 Year
  Sex: Female

DRUGS (2)
  1. ENTRESTO [Suspect]
     Active Substance: SACUBITRIL\VALSARTAN
     Indication: Product used for unknown indication
     Dosage: 100 MG(49/51 MG)
     Route: 048
     Dates: start: 20210701
  2. ENTRESTO [Suspect]
     Active Substance: SACUBITRIL\VALSARTAN
     Dosage: 200 MG, BID(97/103 MG)
     Route: 048

REACTIONS (8)
  - Cellulitis [Unknown]
  - Wound [Unknown]
  - Skin ulcer [Unknown]
  - Gait disturbance [Unknown]
  - Osteomyelitis [Unknown]
  - Suture related complication [Unknown]
  - Mobility decreased [Not Recovered/Not Resolved]
  - Glycosylated haemoglobin decreased [Unknown]

NARRATIVE: CASE EVENT DATE: 20211013
